FAERS Safety Report 7054469-7 (Version None)
Quarter: 2010Q4

REPORT INFORMATION
  Report Type: 
  Country: None (occurrence: None)
  Receive Date: 20101020
  Receipt Date: 20101006
  Transmission Date: 20110411
  Serious: Yes (Hospitalization, Disabling, Other)
  Sender: FDA-Public Use
  Company Number: US-CELGENEUS-163-21880-10082208

PATIENT
  Sex: Female

DRUGS (9)
  1. REVLIMID [Suspect]
     Indication: MYELOFIBROSIS
     Route: 048
     Dates: start: 20100306
  2. REVLIMID [Suspect]
     Dosage: 10-25MG
     Route: 048
     Dates: start: 20100401, end: 20100717
  3. REVLIMID [Suspect]
     Route: 048
     Dates: start: 20100823
  4. PREDNISONE TAB [Concomitant]
     Indication: MYELOFIBROSIS
     Route: 048
     Dates: start: 20100603, end: 20100728
  5. ASPIRIN [Concomitant]
     Route: 048
     Dates: start: 20100213
  6. ZANTAC [Concomitant]
     Indication: GASTRITIS
     Route: 048
     Dates: start: 20100603
  7. PERCOCET [Concomitant]
     Indication: FRACTURE
     Dosage: 325/5
     Route: 065
     Dates: start: 20100712
  8. FOSAMAX [Concomitant]
     Indication: OSTEOPOROSIS
     Route: 065
     Dates: start: 20100728
  9. HYDREA [Concomitant]
     Indication: THROMBOCYTOSIS
     Route: 065
     Dates: start: 20100401

REACTIONS (4)
  - ANAEMIA [None]
  - CERVICAL VERTEBRAL FRACTURE [None]
  - SPINAL FRACTURE [None]
  - THROMBOCYTOSIS [None]
